FAERS Safety Report 6004431-8 (Version None)
Quarter: 2008Q4

REPORT INFORMATION
  Report Type: 
  Country: None (occurrence: None)
  Receive Date: 20081216
  Receipt Date: 20081208
  Transmission Date: 20090506
  Serious: Yes (Life-Threatening, Hospitalization, Other)
  Sender: FDA-Public Use
  Company Number: US-MERCK-0812USA00910

PATIENT
  Age: 8 Year
  Sex: Male
  Weight: 30 kg

DRUGS (2)
  1. SINGULAIR [Suspect]
     Indication: ASTHMA
     Route: 048
     Dates: start: 19980301, end: 20050827
  2. SINGULAIR [Suspect]
     Route: 048
     Dates: start: 20050828, end: 20061114

REACTIONS (6)
  - ABDOMINAL PAIN UPPER [None]
  - MAJOR DEPRESSION [None]
  - NIGHTMARE [None]
  - PAIN IN EXTREMITY [None]
  - SOMNOLENCE [None]
  - SUICIDAL IDEATION [None]
